FAERS Safety Report 25422510 (Version 3)
Quarter: 2025Q3

REPORT INFORMATION
  Report Type: Report from Study
  Country: US (occurrence: US)
  Receive Date: 20250611
  Receipt Date: 20250713
  Transmission Date: 20251020
  Serious: No
  Sender: DECIPHERA PHARMACEUTICALS
  Company Number: US-DECIPHERA PHARMACEUTICALS LLC-2025US000649

PATIENT
  Age: 62 Year
  Sex: Male

DRUGS (4)
  1. ROMVIMZA [Suspect]
     Active Substance: VIMSELTINIB
     Indication: Bone neoplasm
     Dosage: 30 MILLIGRAM, TWICE WEEKLY
     Route: 048
     Dates: start: 20250520
  2. ROMVIMZA [Suspect]
     Active Substance: VIMSELTINIB
     Indication: Neoplasm skin
  3. ROMVIMZA [Suspect]
     Active Substance: VIMSELTINIB
     Indication: Soft tissue neoplasm
  4. ROMVIMZA [Suspect]
     Active Substance: VIMSELTINIB
     Indication: Giant cell tumour of tendon sheath

REACTIONS (2)
  - Eye disorder [Unknown]
  - Asthenia [Not Recovered/Not Resolved]

NARRATIVE: CASE EVENT DATE: 20250101
